FAERS Safety Report 5490630-0 (Version None)
Quarter: 2007Q4

REPORT INFORMATION
  Report Type: 
  Country: None (occurrence: None)
  Receive Date: 20071019
  Receipt Date: 20071012
  Transmission Date: 20080405
  Serious: Yes (Other)
  Sender: FDA-Public Use
  Company Number: CA-ASTRAZENECA-2007UW24037

PATIENT
  Sex: Female

DRUGS (7)
  1. CRESTOR [Suspect]
     Route: 048
  2. LIPITOR [Suspect]
     Route: 048
  3. ALTACE [Concomitant]
  4. ASPIRIN [Concomitant]
  5. BISOPROLOL FUMARATE [Concomitant]
  6. RABEPRAZOLE SODIUM [Concomitant]
  7. PLAVIX [Concomitant]

REACTIONS (8)
  - DEPRESSION [None]
  - GASTROOESOPHAGEAL REFLUX DISEASE [None]
  - HEADACHE [None]
  - MIGRAINE [None]
  - MOOD SWINGS [None]
  - MYOCARDIAL INFARCTION [None]
  - NAUSEA [None]
  - VISUAL ACUITY REDUCED [None]
